FAERS Safety Report 4850609-6 (Version None)
Quarter: 2005Q4

REPORT INFORMATION
  Report Type: 
  Country: None (occurrence: None)
  Receive Date: 20051208
  Receipt Date: 20051122
  Transmission Date: 20060501
  Serious: Yes (Hospitalization)
  Sender: FDA-Public Use
  Company Number: DSA_27465_2005

PATIENT
  Age: 63 Year
  Sex: Male

DRUGS (4)
  1. LORAZEPAM [Suspect]
     Dosage: DF ONCE PO
     Route: 048
     Dates: start: 20051122, end: 20051122
  2. STANGYL [Suspect]
     Dosage: 50 TAB ONCE PO
     Route: 048
     Dates: start: 20051122, end: 20051122
  3. STILNOX [Suspect]
     Dosage: DF ONCE PO
     Route: 048
     Dates: start: 20051122, end: 20051122
  4. VENLAFAXINE HCL [Suspect]
     Dosage: 500 MG ONCE PO
     Route: 048
     Dates: start: 20051122, end: 20051122

REACTIONS (4)
  - BOWEL SOUNDS ABNORMAL [None]
  - MULTIPLE DRUG OVERDOSE INTENTIONAL [None]
  - SOMNOLENCE [None]
  - SUICIDE ATTEMPT [None]
